FAERS Safety Report 24295125 (Version 2)
Quarter: 2024Q4

REPORT INFORMATION
  Report Type: Spontaneous
  Country: PL (occurrence: PL)
  Receive Date: 20240907
  Receipt Date: 20241019
  Transmission Date: 20250115
  Serious: Yes (Hospitalization)
  Sender: AUROBINDO
  Company Number: PL-URPL-1-1602-2020

PATIENT
  Age: 75 Year
  Sex: Female

DRUGS (1)
  1. FLUCONAZOLE [Suspect]
     Active Substance: FLUCONAZOLE
     Indication: Intertrigo
     Dosage: UNK
     Route: 048
     Dates: start: 20200325

REACTIONS (3)
  - Eczema [Recovered/Resolved]
  - Rash papular [Recovered/Resolved]
  - Exfoliative rash [Recovered/Resolved]

NARRATIVE: CASE EVENT DATE: 20200327
